FAERS Safety Report 7814631-X (Version None)
Quarter: 2011Q4

REPORT INFORMATION
  Report Type: 
  Country: None (occurrence: None)
  Receive Date: 20111013
  Receipt Date: 20111013
  Transmission Date: 20120403
  Serious: Yes (Life-Threatening)
  Sender: FDA-Public Use
  Company Number: None

PATIENT
  Sex: Female
  Weight: 77.3 kg

DRUGS (1)
  1. FENTANYL-100 [Suspect]
     Indication: PAIN
     Dosage: 50MCG/H 1 EVERY THREE DAYS TRANSDERMAL
     Route: 062
     Dates: start: 20100901

REACTIONS (5)
  - MENTAL STATUS CHANGES [None]
  - SOMNOLENCE [None]
  - NAUSEA [None]
  - MIOSIS [None]
  - DYSARTHRIA [None]
